FAERS Safety Report 15354714 (Version 5)
Quarter: 2019Q2

REPORT INFORMATION
  Report Type: Spontaneous
  Country: PT (occurrence: PT)
  Receive Date: 20180906
  Receipt Date: 20190508
  Transmission Date: 20190711
  Serious: Yes (Hospitalization, Other)
  Sender: FDA-Public Use
  Company Number: PT-009507513-1809PRT000696

PATIENT
  Age: 62 Year
  Sex: Male

DRUGS (3)
  1. MAGNESIUM (UNSPECIFIED) [Concomitant]
     Active Substance: MAGNESIUM
     Dosage: UNK
  2. KEYTRUDA [Suspect]
     Active Substance: PEMBROLIZUMAB
     Indication: MALIGNANT MELANOMA
     Dosage: 160 MG, Q3W
     Dates: start: 201704, end: 2018
  3. KEYTRUDA [Suspect]
     Active Substance: PEMBROLIZUMAB
     Dosage: UNK
     Dates: start: 201812

REACTIONS (6)
  - Pyrexia [Recovered/Resolved]
  - Pyrexia [Unknown]
  - Bacterial infection [Unknown]
  - Hepatotoxicity [Recovered/Resolved]
  - Immune thrombocytopenic purpura [Recovered/Resolved]
  - Malignant neoplasm progression [Unknown]

NARRATIVE: CASE EVENT DATE: 2018
